FAERS Safety Report 6935234-5 (Version None)
Quarter: 2010Q3

REPORT INFORMATION
  Report Type: 
  Country: None (occurrence: None)
  Receive Date: 20100822
  Receipt Date: 20100713
  Transmission Date: 20110219
  Serious: No
  Sender: FDA-Public Use
  Company Number: US-ALLERGAN-0914987US

PATIENT
  Age: 62 Year
  Sex: Female

DRUGS (11)
  1. COMBIGAN [Suspect]
     Indication: INTRAOCULAR PRESSURE INCREASED
     Dosage: 1 GTT, BID
     Route: 047
  2. COMBIGAN [Suspect]
     Dosage: 1 GTT, BID
     Route: 047
  3. COMBIGAN [Suspect]
     Dosage: 1 GTT, BID
     Route: 047
  4. COMBIGAN [Suspect]
     Dosage: 1 GTT, BID
     Route: 047
  5. COMBIGAN [Suspect]
     Dosage: 1 GTT, BID
     Route: 047
  6. COMBIGAN [Suspect]
     Dosage: 1 UNK, UNK
     Route: 047
  7. STEROID [Concomitant]
     Indication: SCLERITIS
     Dosage: UNK
  8. RESTASIS [Concomitant]
     Indication: DRY EYE
     Dosage: 1 GTT, BID
     Route: 047
  9. SYSTANE ULTRA [Concomitant]
     Indication: DRY EYE
     Dosage: 1 GTT, PRN
     Route: 047
  10. PREMARIN [Concomitant]
  11. HUMIRA [Concomitant]

REACTIONS (3)
  - EYE IRRITATION [None]
  - OCULAR HYPERAEMIA [None]
  - THERAPEUTIC RESPONSE UNEXPECTED [None]
